FAERS Safety Report 9100845 (Version 1)
Quarter: 2013Q1

REPORT INFORMATION
  Report Type: Spontaneous
  Country: BR (occurrence: BR)
  Receive Date: 20130215
  Receipt Date: 20130215
  Transmission Date: 20140127
  Serious: Yes (Death, Other)
  Sender: FDA-Public Use
  Company Number: PHHY2013BR014724

PATIENT
  Age: 88 Year
  Sex: Female

DRUGS (2)
  1. STALEVO [Suspect]
     Indication: PARKINSON^S DISEASE
     Dosage: 50 MG, 4 TO 5 TABLETS DAILY
     Route: 048
  2. STALEVO [Suspect]
     Dosage: 100 MG, 1 TABLET DAILY
     Route: 048

REACTIONS (3)
  - Pancreatitis acute [Fatal]
  - Cardiac arrest [Fatal]
  - Hypokinesia [Unknown]
